FAERS Safety Report 17914871 (Version 1)
Quarter: 2020Q2

REPORT INFORMATION
  Report Type: Spontaneous
  Country: JP (occurrence: JP)
  Receive Date: 20200618
  Receipt Date: 20200618
  Transmission Date: 20200714
  Serious: Yes (Hospitalization, Other)
  Sender: FDA-Public Use
  Company Number: JP-ELI_LILLY_AND_COMPANY-JP202006005927

PATIENT
  Sex: Male

DRUGS (8)
  1. NATRIX [Concomitant]
     Active Substance: INDAPAMIDE
  2. PREDONINE [Concomitant]
     Active Substance: PREDNISOLONE
  3. LIMAPROST ALFADEX [Concomitant]
     Active Substance: LIMAPROST
  4. DULOXETINE HYDROCHLORIDE. [Suspect]
     Active Substance: DULOXETINE HYDROCHLORIDE
     Indication: DEPRESSION
     Dosage: 40 MG, DAILY
     Route: 048
     Dates: end: 20200430
  5. HALFDIGOXIN [Concomitant]
     Active Substance: DIGOXIN
  6. DEPAS [ETIZOLAM] [Concomitant]
     Active Substance: ETIZOLAM
  7. SPIOLTO RESPIMAT [Concomitant]
     Active Substance: OLODATEROL HYDROCHLORIDE\TIOTROPIUM BROMIDE MONOHYDRATE
  8. MOHRUS [Concomitant]
     Active Substance: KETOPROFEN

REACTIONS (9)
  - Delirium [Unknown]
  - Chronic obstructive pulmonary disease [Unknown]
  - Suicidal ideation [Unknown]
  - Behaviour disorder [Unknown]
  - Depression [Unknown]
  - Urinary retention [Unknown]
  - Pyelonephritis [Unknown]
  - Septic shock [Unknown]
  - Memory impairment [Unknown]
